FAERS Safety Report 9458273 (Version 1)
Quarter: 2013Q3

REPORT INFORMATION
  Report Type: Spontaneous
  Country: FR (occurrence: FR)
  Receive Date: 20130814
  Receipt Date: 20130814
  Transmission Date: 20140515
  Serious: Yes (Other)
  Sender: FDA-Public Use
  Company Number: FR-PFIZER INC-2013234420

PATIENT
  Sex: Female

DRUGS (6)
  1. CORDARONE [Suspect]
     Indication: TACHYCARDIA
     Dosage: UNK
     Route: 065
     Dates: start: 2011
  2. CRESTOR [Concomitant]
     Dosage: UNK
  3. LEVOTHYROX [Concomitant]
     Dosage: UNK
  4. DAFALGAN [Concomitant]
     Dosage: UNK
  5. GAVISCON [Concomitant]
     Dosage: UNK
  6. TEMESTA [Concomitant]
     Dosage: UNK

REACTIONS (1)
  - Weight increased [Not Recovered/Not Resolved]
